FAERS Safety Report 26077870 (Version 1)
Quarter: 2025Q4

REPORT INFORMATION
  Report Type: Spontaneous
  Country: US (occurrence: US)
  Receive Date: 20251122
  Receipt Date: 20251122
  Transmission Date: 20260117
  Serious: No
  Sender: MDD OPERATIONS
  Company Number: US-MDD US Operations-MDD202508-003164

PATIENT
  Age: 68 Year
  Sex: Male

DRUGS (4)
  1. ONAPGO [Suspect]
     Active Substance: APOMORPHINE HYDROCHLORIDE
     Indication: Parkinson^s disease
     Dosage: 1 MG PER HOUR
     Dates: start: 20250814
  2. ONAPGO [Suspect]
     Active Substance: APOMORPHINE HYDROCHLORIDE
     Indication: On and off phenomenon
     Dosage: 2.5MG PER HOUR
     Dates: start: 202508
  3. ONAPGO [Suspect]
     Active Substance: APOMORPHINE HYDROCHLORIDE
     Dosage: STRENGTH: 98 MG/20 ML
     Route: 058
     Dates: start: 202508
  4. ONAPGO [Suspect]
     Active Substance: APOMORPHINE HYDROCHLORIDE
     Dosage: 1MG PER HOUR
     Route: 058
     Dates: start: 20250924

REACTIONS (9)
  - Flatulence [Recovered/Resolved]
  - Feeling abnormal [Unknown]
  - Somnolence [Not Recovered/Not Resolved]
  - Nausea [Not Recovered/Not Resolved]
  - Fatigue [Unknown]
  - Injection site erythema [Unknown]
  - Injection site swelling [Unknown]
  - Injection site irritation [Unknown]
  - Vomiting [Recovered/Resolved]
